FAERS Safety Report 5505542-3 (Version None)
Quarter: 2007Q4

REPORT INFORMATION
  Report Type: 
  Country: None (occurrence: None)
  Receive Date: 20071102
  Receipt Date: 20071024
  Transmission Date: 20080405
  Serious: Yes (Hospitalization)
  Sender: FDA-Public Use
  Company Number: US-SHR-US-2007-025506

PATIENT
  Age: 50 Year
  Sex: Female
  Weight: 63.492 kg

DRUGS (19)
  1. BETASERON [Suspect]
     Indication: RELAPSING-REMITTING MULTIPLE SCLEROSIS
     Dosage: 8 MIU, EVERY 2D
     Route: 058
     Dates: start: 20050105, end: 20070101
  2. BETASERON [Suspect]
     Dosage: 8 MIU, EVERY 2D
     Route: 058
     Dates: start: 20070101
  3. SPORANOX [Suspect]
     Indication: BLASTOMYCOSIS
     Dosage: 100 MG, 2X/DAY
     Route: 048
     Dates: start: 20070629
  4. SPORANOX [Suspect]
     Dosage: 200 MG, 2X/DAY
     Route: 048
     Dates: start: 20070710
  5. LEXAPRO [Concomitant]
     Indication: DEPRESSION
     Dosage: 10 MG, 1X/DAY
     Route: 048
     Dates: start: 20070304
  6. BACLOFEN [Concomitant]
     Dosage: 20 MG, 4X/DAY
     Route: 048
     Dates: start: 20070129
  7. TEGRETOL [Concomitant]
     Dosage: 50 MG, 4X/DAY
     Route: 048
     Dates: start: 20070904
  8. FOSAMAX [Concomitant]
     Dosage: 70 MG, 1X/WEEK
     Route: 048
     Dates: start: 20070810
  9. CALCIUM [Concomitant]
  10. VITAMIN D [Concomitant]
  11. FERROUS SULFATE TAB [Concomitant]
     Dosage: 325 MG, 1X/DAY
  12. ULTRAM [Concomitant]
     Dosage: 50 MG, 3X/DAY
     Route: 048
     Dates: start: 20070802
  13. VICODIN ES [Concomitant]
     Dosage: 750MG-7.5MG, EVERY 6H, AS NEEDED
     Route: 048
     Dates: start: 20070908
  14. ASCORBIC ACID-FERROUS SULFATE [Concomitant]
     Dosage: 500MG-105MG, 3X/DAY
     Route: 048
  15. ATENOLOL [Concomitant]
     Dosage: 50 MG, 1X/DAY
     Route: 048
  16. CALCIUM CARBONATE [Concomitant]
     Dosage: 500 MG, 3X/DAY
     Route: 048
  17. FOLIC ACID [Concomitant]
     Dosage: 1 MG, 1X/DAY
     Route: 048
     Dates: start: 20070628
  18. POTASSIUM CHLORIDE [Concomitant]
     Dosage: 10 MEQ, 1X/DAY
     Route: 048
  19. VITAMIN B-12 [Concomitant]
     Dosage: 1000 A?G/ML, 1X/MONTH
     Route: 050

REACTIONS (2)
  - BLASTOMYCOSIS [None]
  - BLOOD ALKALINE PHOSPHATASE INCREASED [None]
